FAERS Safety Report 15153476 (Version 1)
Quarter: 2018Q3

REPORT INFORMATION
  Report Type: Spontaneous
  Country: RO (occurrence: RO)
  Receive Date: 20180717
  Receipt Date: 20180717
  Transmission Date: 20181010
  Serious: Yes (Life-Threatening, Other)
  Sender: FDA-Public Use
  Company Number: PHHY2018RO047242

PATIENT
  Sex: Female
  Weight: 2.43 kg

DRUGS (2)
  1. ENOXAPARIN [Suspect]
     Active Substance: ENOXAPARIN
     Indication: FOETAL EXPOSURE DURING PREGNANCY
     Dosage: UNK
     Route: 064
  2. ACETYLSALICYLIC ACID [Suspect]
     Active Substance: ASPIRIN
     Indication: FOETAL EXPOSURE DURING PREGNANCY
     Dosage: MATERNAL DOSE 75 MG
     Route: 064

REACTIONS (5)
  - Coarctation of the aorta [Unknown]
  - Congenital central nervous system anomaly [Unknown]
  - Anterior chamber cleavage syndrome [Unknown]
  - Foetal exposure during pregnancy [Unknown]
  - Developmental glaucoma [Unknown]
